FAERS Safety Report 26151504 (Version 2)
Quarter: 2025Q4

REPORT INFORMATION
  Report Type: Spontaneous
  Country: US (occurrence: US)
  Receive Date: 20251212
  Receipt Date: 20251218
  Transmission Date: 20260119
  Serious: No
  Sender: BRISTOL-MYERS SQUIBB COMPANY
  Company Number: US-BRISTOL-MYERS SQUIBB COMPANY-2025-167465

PATIENT
  Age: 85 Year
  Sex: Female
  Weight: 70.76 kg

DRUGS (29)
  1. CAMZYOS [Suspect]
     Active Substance: MAVACAMTEN
     Indication: Hypertrophic cardiomyopathy
     Route: 048
     Dates: start: 20250908
  2. CAMZYOS [Suspect]
     Active Substance: MAVACAMTEN
     Route: 048
     Dates: start: 20250829
  3. METOPROLOL SUCCINATE [Concomitant]
     Active Substance: METOPROLOL SUCCINATE
     Indication: Product used for unknown indication
     Dosage: EXTENDED-RELEASE
  4. ATORVASTATIN CALCIUM [Concomitant]
     Active Substance: ATORVASTATIN CALCIUM
     Indication: Product used for unknown indication
     Route: 048
  5. GABAPENTIN [Concomitant]
     Active Substance: GABAPENTIN
     Indication: Product used for unknown indication
     Route: 048
  6. ELIQUIS [Concomitant]
     Active Substance: APIXABAN
     Indication: Product used for unknown indication
     Route: 048
  7. PANTOPRAZOLE SODIUM [Concomitant]
     Active Substance: PANTOPRAZOLE SODIUM
     Indication: Gastrointestinal disorder
  8. MAGNESIUM [ASCORBIC ACID;MAGNESIUM CITRATE] [Concomitant]
     Indication: Product used for unknown indication
     Route: 048
  9. CHONDROITIN SULFATE;GLUCOSAMINE;MANGANESE [Concomitant]
     Indication: Product used for unknown indication
     Route: 048
  10. VITAMIN E [Concomitant]
     Active Substance: .ALPHA.-TOCOPHEROL
     Indication: Product used for unknown indication
     Route: 048
  11. CHOLECALCIFEROL [Concomitant]
     Active Substance: CHOLECALCIFEROL
     Indication: Product used for unknown indication
     Route: 048
  12. AZO [Concomitant]
     Active Substance: PHENAZOPYRIDINE HYDROCHLORIDE
     Indication: Product used for unknown indication
  13. BIOTIN [Concomitant]
     Active Substance: BIOTIN
     Indication: Product used for unknown indication
     Route: 048
  14. PHENAZOPYRIDINE HYDROCHLORIDE [Concomitant]
     Active Substance: PHENAZOPYRIDINE HYDROCHLORIDE
     Indication: Product used for unknown indication
     Route: 048
  15. ACETAMINOPHEN [Concomitant]
     Active Substance: ACETAMINOPHEN
     Indication: Product used for unknown indication
     Route: 048
  16. CRANBERRY [Concomitant]
     Active Substance: CRANBERRY
     Indication: Product used for unknown indication
     Dosage: LIQUID FILLED
     Route: 048
  17. COENZYME Q10 [Concomitant]
     Active Substance: DIETARY SUPPLEMENT\UBIDECARENONE
     Indication: Product used for unknown indication
  18. MELATONIN [Concomitant]
     Active Substance: MELATONIN
     Indication: Product used for unknown indication
  19. LACTOBACILLUS ACIDOPHILUS [Concomitant]
     Active Substance: LACTOBACILLUS ACIDOPHILUS
     Indication: Product used for unknown indication
  20. MAGNESIUM [Concomitant]
     Active Substance: MAGNESIUM
     Indication: Product used for unknown indication
  21. VITAMIN D3 [Concomitant]
     Active Substance: CHOLECALCIFEROL
     Indication: Product used for unknown indication
  22. PREGABALIN [Concomitant]
     Active Substance: PREGABALIN
     Indication: Product used for unknown indication
  23. MINERALS\VITAMINS [Concomitant]
     Active Substance: MINERALS\VITAMINS
     Indication: Product used for unknown indication
  24. DIETARY SUPPLEMENT [Concomitant]
     Active Substance: DIETARY SUPPLEMENT
     Indication: Product used for unknown indication
  25. THERACRAN [Concomitant]
     Indication: Product used for unknown indication
  26. HERBALS\TURMERIC [Concomitant]
     Active Substance: HERBALS\TURMERIC
     Indication: Product used for unknown indication
  27. TYLENOL [Concomitant]
     Active Substance: ACETAMINOPHEN
     Indication: Product used for unknown indication
  28. ONE A DAY WOMEN^S [ASCORBIC ACID;BETACAROTENE;CALCIUM CARBONATE;CALCIU [Concomitant]
     Indication: Product used for unknown indication
  29. FISH OIL [Concomitant]
     Active Substance: FISH OIL
     Indication: Product used for unknown indication

REACTIONS (2)
  - Joint swelling [Unknown]
  - Peripheral swelling [Unknown]

NARRATIVE: CASE EVENT DATE: 20251205
